FAERS Safety Report 23012845 (Version 2)
Quarter: 2023Q4

REPORT INFORMATION
  Report Type: Spontaneous
  Country: US (occurrence: US)
  Receive Date: 20230930
  Receipt Date: 20231128
  Transmission Date: 20240110
  Serious: No
  Sender: FDA-Public Use
  Company Number: US-SA-SAC20230925001278

PATIENT
  Age: 38 Year
  Sex: Female

DRUGS (2)
  1. DUPIXENT [Suspect]
     Active Substance: DUPILUMAB
     Indication: Nasal polyps
     Dosage: 300 MG, QOW
     Route: 058
     Dates: start: 202308
  2. DUPIXENT [Suspect]
     Active Substance: DUPILUMAB
     Indication: Chronic rhinosinusitis with nasal polyps

REACTIONS (6)
  - Productive cough [Unknown]
  - Nasal congestion [Unknown]
  - Rhinorrhoea [Unknown]
  - Illness [Unknown]
  - Respiratory tract congestion [Recovering/Resolving]
  - Therapeutic response decreased [Unknown]

NARRATIVE: CASE EVENT DATE: 20230101
